FAERS Safety Report 15549108 (Version 1)
Quarter: 2018Q4

REPORT INFORMATION
  Report Type: Spontaneous
  Country: FR (occurrence: FR)
  Receive Date: 20181025
  Receipt Date: 20181025
  Transmission Date: 20190205
  Serious: Yes (Hospitalization)
  Sender: FDA-Public Use
  Company Number: FR-UCBSA-011731

PATIENT
  Age: 89 Year
  Sex: Female

DRUGS (15)
  1. FUCIDINE (FUSIDIC ACID) [Suspect]
     Active Substance: FUSIDIC ACID
     Indication: INFECTED SKIN ULCER
     Dosage: UNKNOWN DOSE
     Route: 048
     Dates: start: 20100413, end: 20100429
  2. INEXIUM [Concomitant]
     Active Substance: ESOMEPRAZOLE
  3. ALDACTONE [Concomitant]
     Active Substance: SPIRONOLACTONE
  4. OXYCONTIN [Concomitant]
     Active Substance: OXYCODONE HYDROCHLORIDE
  5. HEMIGOXINE [Concomitant]
     Active Substance: DIGOXIN
  6. CARDENSIEL [Concomitant]
     Active Substance: BISOPROLOL FUMARATE
  7. XYZALL [Suspect]
     Active Substance: LEVOCETIRIZINE DIHYDROCHLORIDE
     Route: 048
     Dates: start: 20100424, end: 20100426
  8. OXYNORM [Concomitant]
     Active Substance: OXYCODONE HYDROCHLORIDE
  9. LYRICA [Suspect]
     Active Substance: PREGABALIN
     Indication: NEURALGIA
     Dosage: 75 MG, 2X/DAY (BID)
     Route: 048
     Dates: start: 20100423, end: 20100426
  10. FUCIDINE (FUSIDIC ACID) [Suspect]
     Active Substance: FUSIDIC ACID
     Indication: INFECTED SKIN ULCER
  11. PREVISCAN (FLUINDIONE) [Concomitant]
     Active Substance: FLUINDIONE
  12. GASVISCON [Concomitant]
  13. IMOVANE [Concomitant]
     Active Substance: ZOPICLONE
  14. TRIATEC (RAMIPRIL) [Concomitant]
     Active Substance: RAMIPRIL
  15. LASILIX [Concomitant]
     Active Substance: FUROSEMIDE

REACTIONS (2)
  - Thrombocytopenia [Recovering/Resolving]
  - Agranulocytosis [Recovered/Resolved]

NARRATIVE: CASE EVENT DATE: 20100427
